FAERS Safety Report 24124035 (Version 1)
Quarter: 2024Q3

REPORT INFORMATION
  Report Type: Spontaneous
  Country: PL (occurrence: PL)
  Receive Date: 20240723
  Receipt Date: 20240723
  Transmission Date: 20241016
  Serious: Yes (Hospitalization, Other)
  Sender: CHEPLAPHARM
  Company Number: PL-CHEPLA-2024009160

PATIENT
  Age: 49 Year
  Sex: Female

DRUGS (13)
  1. OLANZAPINE [Suspect]
     Active Substance: OLANZAPINE
     Indication: Schizophrenia
     Dosage: 20 MG/DAY FOR MANY YEARS?DAILY DOSE: 20 MILLIGRAM
  2. OLANZAPINE [Suspect]
     Active Substance: OLANZAPINE
     Indication: Schizophrenia
     Dosage: 20 MG/DAY FOR THE NEXT SIX WEEKS?DAILY DOSE: 20 MILLIGRAM
  3. OLANZAPINE [Suspect]
     Active Substance: OLANZAPINE
     Indication: Schizophrenia
     Dosage: RESTARTED AT A DOSE OF 20 MG/DAY?DAILY DOSE: 20 MILLIGRAM
  4. RISPERIDONE [Suspect]
     Active Substance: RISPERIDONE
     Indication: Schizophrenia
     Dosage: 6 MG/DAY FOR SIX WEEKS?DAILY DOSE: 6 MILLIGRAM
  5. DIAZEPAM [Suspect]
     Active Substance: DIAZEPAM
     Indication: Schizophrenia
     Dosage: DAILY DOSE: 20 MILLIGRAM
  6. LORAZEPAM [Concomitant]
     Active Substance: LORAZEPAM
     Indication: Schizophrenia
     Dosage: DAILY DOSE: 12 MILLIGRAM
  7. CLOZAPINE [Concomitant]
     Active Substance: CLOZAPINE
     Indication: Schizophrenia
  8. CLOZAPINE [Concomitant]
     Active Substance: CLOZAPINE
     Indication: Epilepsy
  9. CLOZAPINE [Concomitant]
     Active Substance: CLOZAPINE
     Indication: Schizophrenia
     Dosage: DAILY DOSE: 300 MILLIGRAM
  10. CLOZAPINE [Concomitant]
     Active Substance: CLOZAPINE
     Indication: Epilepsy
     Dosage: DAILY DOSE: 300 MILLIGRAM
  11. ETOMIDATE [Concomitant]
     Active Substance: ETOMIDATE
  12. MIVACURIUM [Concomitant]
     Active Substance: MIVACURIUM
  13. PROPOFOL [Concomitant]
     Active Substance: PROPOFOL
     Indication: Anaesthesia

REACTIONS (4)
  - Type 2 diabetes mellitus [Recovered/Resolved]
  - Drug ineffective [Recovered/Resolved]
  - Food refusal [Unknown]
  - Ecchymosis [Unknown]
